FAERS Safety Report 9072987 (Version 1)
Quarter: 2013Q1

REPORT INFORMATION
  Report Type: Report from Study
  Country: US (occurrence: US)
  Receive Date: 20130129
  Receipt Date: 20130129
  Transmission Date: 20140127
  Serious: No
  Sender: FDA-Public Use
  Company Number: US-ABBOTT-12P-163-0927819-00

PATIENT
  Age: 34 Year
  Sex: Male
  Weight: 95.34 kg

DRUGS (6)
  1. HUMIRA 40 MG/0.8 ML PEN [Suspect]
     Indication: CROHN^S DISEASE
     Dates: start: 20120321, end: 20120321
  2. HUMIRA 40 MG/0.8 ML PEN [Suspect]
     Dates: start: 20110404, end: 20120404
  3. HUMIRA 40 MG/0.8 ML PEN [Suspect]
     Route: 050
     Dates: start: 20120418
  4. INSULIN [Concomitant]
     Indication: DIABETES MELLITUS
  5. PREDNISONE [Concomitant]
     Indication: CROHN^S DISEASE
     Dosage: WEANING
  6. ASACOL [Concomitant]
     Indication: CROHN^S DISEASE

REACTIONS (2)
  - Poor quality drug administered [Not Recovered/Not Resolved]
  - Incorrect storage of drug [Unknown]
